FAERS Safety Report 4570352-0 (Version None)
Quarter: 2005Q1

REPORT INFORMATION
  Report Type: 
  Country: None (occurrence: None)
  Receive Date: 20050204
  Receipt Date: 20050125
  Transmission Date: 20050727
  Serious: Yes (Death, Hospitalization)
  Sender: FDA-Public Use
  Company Number: US-ROCHE-393669

PATIENT
  Age: 60 Year
  Sex: Female

DRUGS (4)
  1. CELLCEPT [Suspect]
     Route: 065
  2. TELMISARTAN [Suspect]
     Indication: DRUG USE FOR UNKNOWN INDICATION
     Route: 065
     Dates: start: 20040728, end: 20041019
  3. PROGRAF [Suspect]
     Route: 065
  4. PREDNISONE [Suspect]
     Route: 065

REACTIONS (18)
  - ANAEMIA [None]
  - AZOTAEMIA [None]
  - BACTERAEMIA [None]
  - CARDIO-RESPIRATORY ARREST [None]
  - CAROTID ARTERY STENOSIS [None]
  - COMA [None]
  - CYTOMEGALOVIRUS ANTIGEN POSITIVE [None]
  - DRUG INEFFECTIVE [None]
  - EMBOLISM [None]
  - ENCEPHALOPATHY [None]
  - ESCHERICHIA URINARY TRACT INFECTION [None]
  - FLUID OVERLOAD [None]
  - GASTROINTESTINAL HAEMORRHAGE [None]
  - HYPONATRAEMIA [None]
  - LACUNAR INFARCTION [None]
  - RENAL FAILURE ACUTE [None]
  - SEPSIS [None]
  - THROMBOCYTOPENIA [None]
